FAERS Safety Report 13897116 (Version 1)
Quarter: 2017Q3

REPORT INFORMATION
  Report Type: Report from Study
  Country: CO (occurrence: CO)
  Receive Date: 20170823
  Receipt Date: 20170823
  Transmission Date: 20171127
  Serious: Yes (Other)
  Sender: FDA-Public Use
  Company Number: CO-AMGEN-COLSL2017125091

PATIENT
  Age: 46 Year
  Sex: Male

DRUGS (1)
  1. MIMPARA [Suspect]
     Active Substance: CINACALCET HYDROCHLORIDE
     Indication: HYPERPARATHYROIDISM SECONDARY
     Dosage: 60 MG, UNK
     Route: 048
     Dates: start: 20160725

REACTIONS (3)
  - Goitre [Not Recovered/Not Resolved]
  - Bone disorder [Not Recovered/Not Resolved]
  - Treatment failure [Not Recovered/Not Resolved]
